FAERS Safety Report 10185288 (Version 1)
Quarter: 2014Q2

REPORT INFORMATION
  Report Type: Spontaneous
  Country: US (occurrence: US)
  Receive Date: 20140521
  Receipt Date: 20140521
  Transmission Date: 20141212
  Serious: Yes (Hospitalization)
  Sender: FDA-Public Use
  Company Number: US-PFIZER INC-2014135992

PATIENT
  Age: 72 Year
  Sex: Female
  Weight: 59.41 kg

DRUGS (2)
  1. LYRICA [Suspect]
     Indication: CARPAL TUNNEL SYNDROME
     Dosage: 75 MG, 2X/DAY
     Dates: start: 20140423, end: 20140430
  2. LEVOTHYROXINE [Concomitant]
     Indication: HYPOTHYROIDISM
     Dosage: 1 MG, DAILY

REACTIONS (2)
  - Off label use [Recovered/Resolved]
  - Blood creatine phosphokinase increased [Recovered/Resolved]
